FAERS Safety Report 5496355-X (Version None)
Quarter: 2007Q4

REPORT INFORMATION
  Report Type: 
  Country: None (occurrence: None)
  Receive Date: 20071025
  Receipt Date: 20070416
  Transmission Date: 20080405
  Serious: No
  Sender: FDA-Public Use
  Company Number: A0645219A

PATIENT
  Age: 47 Year
  Sex: Female

DRUGS (9)
  1. ADVAIR DISKUS 100/50 [Suspect]
     Indication: ASTHMA
     Dosage: 1PUFF TWICE PER DAY
     Route: 055
     Dates: start: 20030101
  2. PREMPRO [Concomitant]
  3. SYNTHROID [Concomitant]
  4. ZOLOFT [Concomitant]
  5. ALBUTEROL [Concomitant]
  6. ZETIA [Concomitant]
  7. SINGULAIR [Concomitant]
  8. NASONEX [Concomitant]
  9. ACTOS [Concomitant]

REACTIONS (1)
  - DYSPHONIA [None]
